FAERS Safety Report 8896055 (Version 3)
Quarter: 2013Q1

REPORT INFORMATION
  Report Type: Spontaneous
  Country: AU (occurrence: AU)
  Receive Date: 20121108
  Receipt Date: 20130125
  Transmission Date: 20140127
  Serious: Yes (Life-Threatening, Hospitalization, Other)
  Sender: FDA-Public Use
  Company Number: AU-ROCHE-1153724

PATIENT
  Age: 47 Year
  Sex: Male
  Weight: 81 kg

DRUGS (7)
  1. PEGASYS [Suspect]
     Indication: HEPATITIS C
     Route: 058
     Dates: start: 20120104, end: 20120918
  2. PEGASYS [Suspect]
     Route: 065
     Dates: start: 20120926
  3. RIBAVIRIN [Suspect]
     Indication: HEPATITIS C
     Route: 048
     Dates: start: 20120104, end: 20120926
  4. RIBAVIRIN [Suspect]
     Route: 048
     Dates: start: 20120926
  5. NEXIUM [Concomitant]
     Route: 065
  6. DERALIN [Concomitant]
     Indication: OEDEMA
     Route: 048
  7. G-CSF [Concomitant]
     Route: 058

REACTIONS (6)
  - Haemoptysis [Recovering/Resolving]
  - Lung abscess [Recovering/Resolving]
  - Encephalopathy [Unknown]
  - Disease progression [Unknown]
  - Pancytopenia [Unknown]
  - White blood cell count decreased [Unknown]
